FAERS Safety Report 8451011-0 (Version None)
Quarter: 2012Q2

REPORT INFORMATION
  Report Type: 
  Country: None (occurrence: None)
  Receive Date: 20120620
  Receipt Date: 20120608
  Transmission Date: 20120825
  Serious: No
  Sender: FDA-Public Use
  Company Number: US-ASTRAZENECA-2012SE38837

PATIENT
  Age: 80 Year
  Sex: Male

DRUGS (2)
  1. LIPITOR [Concomitant]
  2. CRESTOR [Suspect]
     Route: 048

REACTIONS (3)
  - DIABETES MELLITUS [None]
  - INTENTIONAL DRUG MISUSE [None]
  - PAIN IN EXTREMITY [None]
